FAERS Safety Report 4832289-9 (Version None)
Quarter: 2005Q4

REPORT INFORMATION
  Report Type: 
  Country: None (occurrence: None)
  Receive Date: 20051114
  Receipt Date: 20051103
  Transmission Date: 20060501
  Serious: Yes (Death, Hospitalization, Other)
  Sender: FDA-Public Use
  Company Number: 200514204BCC

PATIENT
  Age: 79 Year
  Sex: Female
  Weight: 61.2356 kg

DRUGS (1)
  1. ALKA SELTZER PLUS EFFERVESCENT COLD [Suspect]
     Dosage: SEE IMAGE
     Route: 048
     Dates: start: 20040101, end: 20040301

REACTIONS (4)
  - BONE NEOPLASM MALIGNANT [None]
  - CLAVICLE FRACTURE [None]
  - EMPHYSEMA [None]
  - PNEUMONIA [None]
